FAERS Safety Report 14383298 (Version 3)
Quarter: 2018Q1

REPORT INFORMATION
  Report Type: Report from Study
  Country: None (occurrence: DE)
  Receive Date: 20180115
  Receipt Date: 20180331
  Transmission Date: 20180509
  Serious: Yes (Hospitalization)
  Sender: FDA-Public Use
  Company Number: DE-ABBVIE-17K-062-2158355-00

PATIENT
  Age: 36 Year
  Sex: Male
  Weight: 65 kg

DRUGS (7)
  1. LOPERAMID [Concomitant]
     Active Substance: LOPERAMIDE
     Indication: PRODUCT USED FOR UNKNOWN INDICATION
     Dosage: 2-2-2 AS NEDED
  2. FENTANYL. [Concomitant]
     Active Substance: FENTANYL
     Indication: PRODUCT USED FOR UNKNOWN INDICATION
     Dosage: AS NEEDED
  3. HUMIRA [Suspect]
     Active Substance: ADALIMUMAB
     Route: 058
     Dates: start: 20180109
  4. TILIDIN [Concomitant]
     Active Substance: NALOXONE HYDROCHLORIDE\TILIDINE HYDROCHLORIDE
     Indication: PRODUCT USED FOR UNKNOWN INDICATION
     Dosage: 50/4 MG
  5. HUMIRA [Suspect]
     Active Substance: ADALIMUMAB
     Indication: CROHN^S DISEASE
     Route: 058
     Dates: start: 20170725, end: 2017
  6. XARELTO [Concomitant]
     Active Substance: RIVAROXABAN
  7. XARELTO [Concomitant]
     Active Substance: RIVAROXABAN
     Indication: PRODUCT USED FOR UNKNOWN INDICATION

REACTIONS (14)
  - Pneumonia [Unknown]
  - Acute right ventricular failure [Unknown]
  - Panic attack [Recovered/Resolved]
  - Factor V Leiden mutation [Unknown]
  - Hyperventilation [Recovered/Resolved]
  - Pulmonary infarction [Unknown]
  - Lung infiltration [Unknown]
  - Nitrite urine present [Unknown]
  - Metastasis [Unknown]
  - Pulmonary embolism [Not Recovered/Not Resolved]
  - Pulmonary mass [Unknown]
  - Stress [Unknown]
  - Ventricular enlargement [Unknown]
  - Urinary tract infection [Unknown]

NARRATIVE: CASE EVENT DATE: 2017
